FAERS Safety Report 10243044 (Version 1)
Quarter: 2014Q2

REPORT INFORMATION
  Report Type: Spontaneous
  Country: CH (occurrence: None)
  Receive Date: 20140613
  Receipt Date: 20140613
  Transmission Date: 20141212
  Serious: Yes (Other)
  Sender: FDA-Public Use
  Company Number: SYM-2014-21910

PATIENT
  Age: 54 Year
  Sex: Female

DRUGS (5)
  1. PIMECROLIMUS [Suspect]
     Indication: LICHEN PLANUS
     Route: 061
  2. CORTICOSTEROIDS [Suspect]
     Indication: LICHEN PLANUS
     Route: 061
  3. TRIAMCINOLONE ACETONIDE [Concomitant]
  4. ACITRETIN (ACITRETIN) [Concomitant]
  5. CLOBETASOL PROPIONATE (0.05 PERCENT, GEL) (CLOBETASOL PROPIONATE) [Concomitant]

REACTIONS (7)
  - Oral disorder [None]
  - Fatigue [None]
  - Skin lesion [None]
  - Alopecia [None]
  - Dysphagia [None]
  - Headache [None]
  - Nail disorder [None]
